FAERS Safety Report 6833402-4 (Version None)
Quarter: 2010Q3

REPORT INFORMATION
  Report Type: 
  Country: None (occurrence: None)
  Receive Date: 20100712
  Receipt Date: 20070322
  Transmission Date: 20110219
  Serious: No
  Sender: FDA-Public Use
  Company Number: US-PFIZER INC-2007025381

PATIENT
  Age: 50 Year
  Sex: Female
  Weight: 45.36 kg

DRUGS (3)
  1. CHANTIX [Suspect]
     Indication: SMOKING CESSATION THERAPY
     Dates: start: 20070217, end: 20070201
  2. ADVAIR DISKUS 100/50 [Concomitant]
     Indication: ASTHMA
     Route: 055
  3. MONTELUKAST SODIUM [Concomitant]
     Indication: ASTHMA

REACTIONS (5)
  - CHILLS [None]
  - HEADACHE [None]
  - PRURITUS [None]
  - RASH [None]
  - TREMOR [None]
